FAERS Safety Report 6862672-1 (Version None)
Quarter: 2010Q3

REPORT INFORMATION
  Report Type: 
  Country: None (occurrence: None)
  Receive Date: 20100719
  Receipt Date: 20100712
  Transmission Date: 20110219
  Serious: Yes (Other)
  Sender: FDA-Public Use
  Company Number: 011231

PATIENT
  Sex: Female
  Weight: 50 kg

DRUGS (1)
  1. KEPPRA [Suspect]
     Indication: CONVULSION
     Dosage: (2000 MG ORAL)
     Route: 048
     Dates: start: 20100303, end: 20100416

REACTIONS (2)
  - BONE MARROW TOXICITY [None]
  - PANCYTOPENIA [None]
